FAERS Safety Report 6574893-6 (Version None)
Quarter: 2010Q1

REPORT INFORMATION
  Report Type: 
  Country: None (occurrence: None)
  Receive Date: 20100209
  Receipt Date: 20100201
  Transmission Date: 20100710
  Serious: Yes (Hospitalization)
  Sender: FDA-Public Use
  Company Number: PHHO2009US00819

PATIENT
  Sex: Male
  Weight: 112 kg

DRUGS (8)
  1. BLINDED ALISKIREN ALI+TAB+CVR [Suspect]
     Indication: CARDIOVASCULAR DISORDER
     Dosage: CODE NOT BROKEN
     Route: 048
     Dates: start: 20081113
  2. BLINDED NO TREATMENT RECEIVED NOMED [Suspect]
     Indication: CARDIOVASCULAR DISORDER
     Dosage: CODE NOT BROKEN
     Route: 048
     Dates: start: 20081113
  3. BLINDED PLACEBO COMP-PLA+ [Suspect]
     Indication: CARDIOVASCULAR DISORDER
     Dosage: CODE NOT BROKEN
     Route: 048
     Dates: start: 20081113
  4. METOPROLOL TARTRATE [Suspect]
     Indication: HYPERTENSION
     Dosage: 50 MG, BID
     Dates: start: 19930101, end: 20090108
  5. METOPROLOL TARTRATE [Suspect]
     Dosage: 25 MG, QD
     Route: 048
     Dates: start: 20090320
  6. NORVASC [Suspect]
     Indication: HYPERTENSION
     Dosage: 5 MG, QD
     Dates: start: 20080901, end: 20090108
  7. LASIX [Concomitant]
     Indication: FLUID OVERLOAD
     Dosage: UNK
  8. ENALAPRIL MALEATE [Concomitant]
     Indication: HYPERTENSION

REACTIONS (3)
  - BRADYCARDIA [None]
  - HYPOTENSION [None]
  - PRESYNCOPE [None]
